FAERS Safety Report 9753736 (Version 1)
Quarter: 2013Q4

REPORT INFORMATION
  Report Type: Spontaneous
  Country: US (occurrence: US)
  Receive Date: 20131213
  Receipt Date: 20131213
  Transmission Date: 20140711
  Serious: No
  Sender: FDA-Public Use
  Company Number: US-GILEAD-2010-0026631

PATIENT
  Sex: Female
  Weight: 113.4 kg

DRUGS (12)
  1. LETAIRIS [Suspect]
     Indication: PULMONARY ARTERIAL HYPERTENSION
     Route: 048
     Dates: start: 20091221
  2. SINGULAIR [Concomitant]
  3. COUMADIN [Concomitant]
  4. VIAGRA [Concomitant]
  5. SPIRONOLACTONE [Concomitant]
  6. DIGOXIN [Concomitant]
  7. ALBUTEROL [Concomitant]
  8. FUROSEMIDE [Concomitant]
  9. VENTAVIS [Concomitant]
  10. METOLAZONE [Concomitant]
  11. POTASSIUM CHLORIDE [Concomitant]
  12. VERAMYST [Concomitant]

REACTIONS (1)
  - Headache [Unknown]
